FAERS Safety Report 5108909-0 (Version None)
Quarter: 2006Q3

REPORT INFORMATION
  Report Type: 
  Country: None (occurrence: None)
  Receive Date: 20060920
  Receipt Date: 20060905
  Transmission Date: 20061208
  Serious: Yes (Death)
  Sender: FDA-Public Use
  Company Number: US-JNJFOC-20060902696

PATIENT
  Age: 32 Year

DRUGS (3)
  1. DIPHENHYDRAMINE HCL [Suspect]
     Indication: INTENTIONAL DRUG MISUSE
     Route: 048
  2. ORPHENADRINE CITRATE [Suspect]
     Indication: DRUG USE FOR UNKNOWN INDICATION
     Route: 048
  3. OXYCODONE HCL [Suspect]
     Indication: DRUG USE FOR UNKNOWN INDICATION
     Route: 048

REACTIONS (2)
  - DEATH [None]
  - INTENTIONAL DRUG MISUSE [None]
